FAERS Safety Report 7564209-0 (Version None)
Quarter: 2011Q2

REPORT INFORMATION
  Report Type: 
  Country: None (occurrence: None)
  Receive Date: 20110622
  Receipt Date: 20110608
  Transmission Date: 20111010
  Serious: Yes (Other)
  Sender: FDA-Public Use
  Company Number: PHHY2011US50737

PATIENT
  Sex: Female

DRUGS (4)
  1. PERCOCET [Concomitant]
     Dosage: UNK
  2. HYDROXYUREA [Concomitant]
     Dosage: UNK
  3. FOLIC ACID [Concomitant]
     Dosage: UNK
  4. EXJADE [Suspect]
     Indication: SICKLE CELL ANAEMIA WITH CRISIS
     Dosage: 1000 MG, BID
     Route: 048
     Dates: start: 20110401

REACTIONS (3)
  - BACK PAIN [None]
  - JOINT DISLOCATION [None]
  - ARTHRALGIA [None]
